FAERS Safety Report 11269904 (Version 1)
Quarter: 2015Q3

REPORT INFORMATION
  Report Type: Spontaneous
  Country: US (occurrence: None)
  Receive Date: 20150713
  Receipt Date: 20150713
  Transmission Date: 20151125
  Serious: No
  Sender: FDA-Public Use
  Company Number: None

PATIENT
  Age: 69 Year
  Sex: Male
  Weight: 98.88 kg

DRUGS (6)
  1. TAMSULOSIN [Suspect]
     Active Substance: TAMSULOSIN
     Indication: PROSTATIC DISORDER
     Route: 048
     Dates: start: 20150605, end: 20150628
  2. LUMIGAN [Concomitant]
     Active Substance: BIMATOPROST
  3. SIMVASTATIN. [Concomitant]
     Active Substance: SIMVASTATIN
  4. BRIMONODINE [Concomitant]
  5. DORZOL/TIMOLOL [Concomitant]
     Active Substance: DORZOLAMIDE HYDROCHLORIDE\TIMOLOL MALEATE
  6. LISONOPRIL [Concomitant]

REACTIONS (2)
  - Blood pressure increased [None]
  - Epistaxis [None]

NARRATIVE: CASE EVENT DATE: 20150625
